FAERS Safety Report 8072073-9 (Version None)
Quarter: 2012Q1

REPORT INFORMATION
  Report Type: 
  Country: None (occurrence: None)
  Receive Date: 20120126
  Receipt Date: 20120118
  Transmission Date: 20120608
  Serious: Yes (Death, Other)
  Sender: FDA-Public Use
  Company Number: GB-JNJFOC-20091203111

PATIENT
  Sex: Female
  Weight: 66 kg

DRUGS (11)
  1. DIHYDROCODEINE BITARTRATE INJ [Concomitant]
  2. LEFLUNOMIDE [Concomitant]
  3. PREDNISOLONE [Concomitant]
  4. ROSUVASTATIN [Concomitant]
  5. AZULFIDINE [Concomitant]
  6. CELEBREX [Concomitant]
  7. LEVOTHYROXINE SODIUM [Concomitant]
  8. REMICADE [Suspect]
     Indication: RHEUMATOID ARTHRITIS
     Route: 042
     Dates: start: 20060919, end: 20090421
  9. ADCAL [Concomitant]
  10. ALENDRONATE SODIUM [Concomitant]
  11. HUMALOG [Concomitant]

REACTIONS (2)
  - METASTATIC NEOPLASM [None]
  - PNEUMONIA [None]
